FAERS Safety Report 21098839 (Version 2)
Quarter: 2022Q3

REPORT INFORMATION
  Report Type: Spontaneous
  Country: US (occurrence: US)
  Receive Date: 20220719
  Receipt Date: 20220818
  Transmission Date: 20221026
  Serious: Yes (Other)
  Sender: FDA-Public Use
  Company Number: US-HORIZON THERAPEUTICS-HZN-2022-005207

PATIENT

DRUGS (1)
  1. TEPEZZA [Suspect]
     Active Substance: TEPROTUMUMAB-TRBW
     Indication: Endocrine ophthalmopathy
     Dosage: FIRST INFUSION
     Route: 042

REACTIONS (10)
  - Deafness [Not Recovered/Not Resolved]
  - Abdominal discomfort [Unknown]
  - Vertigo [Unknown]
  - Muscle spasms [Unknown]
  - Alopecia [Unknown]
  - Fatigue [Unknown]
  - Nausea [Unknown]
  - Endocrine ophthalmopathy [Unknown]
  - Condition aggravated [Unknown]
  - Eye disorder [Unknown]
